FAERS Safety Report 9328959 (Version 1)
Quarter: 2013Q2

REPORT INFORMATION
  Report Type: Spontaneous
  Country: US (occurrence: US)
  Receive Date: 20130604
  Receipt Date: 20130604
  Transmission Date: 20140414
  Serious: No
  Sender: FDA-Public Use
  Company Number: US-SANOFI-AVENTIS-2013SA039773

PATIENT
  Age: 50 Year
  Sex: Male

DRUGS (4)
  1. LANTUS SOLOSTAR [Suspect]
     Indication: TYPE 2 DIABETES MELLITUS
     Route: 051
     Dates: start: 20110425
  2. LANTUS SOLOSTAR [Suspect]
     Indication: TYPE 2 DIABETES MELLITUS
     Route: 051
     Dates: start: 20110425
  3. SOLOSTAR [Suspect]
     Indication: TYPE 2 DIABETES MELLITUS
     Dates: start: 20110425
  4. SOLOSTAR [Suspect]
     Indication: TYPE 2 DIABETES MELLITUS
     Dates: start: 20110425

REACTIONS (2)
  - Arthralgia [Recovered/Resolved]
  - Hyperhidrosis [Recovered/Resolved]
